FAERS Safety Report 9284525 (Version 1)
Quarter: 2013Q2

REPORT INFORMATION
  Report Type: Spontaneous
  Country: US (occurrence: US)
  Receive Date: 20130510
  Receipt Date: 20130510
  Transmission Date: 20140414
  Serious: Yes (Congenital Anomaly, Other)
  Sender: FDA-Public Use
  Company Number: US-ALLERGAN-0816574US

PATIENT
  Age: 11 Month
  Sex: Male
  Weight: 10.43 kg

DRUGS (1)
  1. BOTOX? [Suspect]
     Indication: HYPERHIDROSIS
     Dosage: 100 UNITS, SINGLE
     Route: 064
     Dates: start: 20080428, end: 20080428

REACTIONS (4)
  - Horner^s syndrome [Not Recovered/Not Resolved]
  - Head deformity [Not Recovered/Not Resolved]
  - Asthma [Unknown]
  - Bronchitis chronic [Unknown]
